FAERS Safety Report 6142209-5 (Version None)
Quarter: 2009Q2

REPORT INFORMATION
  Report Type: 
  Country: None (occurrence: None)
  Receive Date: 20090403
  Receipt Date: 20071121
  Transmission Date: 20091009
  Serious: Yes (Death)
  Sender: FDA-Public Use
  Company Number: US-ASTRAZENECA-2006UW25030

PATIENT
  Age: 14583 Day
  Sex: Male

DRUGS (47)
  1. SEROQUEL [Suspect]
     Indication: DEPRESSION
     Route: 048
  2. SEROQUEL [Suspect]
     Dosage: 25MG -100MG
     Route: 048
     Dates: start: 20050408
  3. DOCUSATE SODIUM [Concomitant]
  4. FAMOTIDINE [Concomitant]
  5. FENTANYL-25 [Concomitant]
  6. FOLIC ACID [Concomitant]
  7. FUROSEMIDE [Concomitant]
  8. INSULIN REGULAR [Concomitant]
  9. LACTULOSE [Concomitant]
  10. MIDAZOLAM HCL [Concomitant]
  11. NYSTATIN [Concomitant]
  12. TACROLIMUS [Concomitant]
  13. RISPERIDONE [Concomitant]
  14. SPIRONOLACTONE [Concomitant]
  15. LANSOPRAZOLE [Concomitant]
  16. LORAZEPAM [Concomitant]
  17. RIFAXIMIN [Concomitant]
  18. BISACODYL [Concomitant]
  19. KETOROLAC [Concomitant]
  20. INSULIN GLARGINE [Concomitant]
  21. HALOPERIDOL [Concomitant]
  22. IPRATROPIUM BROMIDE [Concomitant]
  23. INSULIN ASPART [Concomitant]
  24. DIPHENHYDRAMINE [Concomitant]
  25. PROMETHAZINE [Concomitant]
  26. PANTOPRAZOLE SODIUM [Concomitant]
  27. ACETAMINOPHEN [Concomitant]
  28. TRIMETHOBENZAMIDE [Concomitant]
  29. FERROUS SULFATE TAB [Concomitant]
  30. IBUPROFEN [Concomitant]
  31. NEOMYCIN SULFATE [Concomitant]
  32. ESCITALOPRAM OXALATE [Concomitant]
  33. ATROPINE [Concomitant]
  34. HYDROCORTISONE [Concomitant]
  35. MULTIPLE VITAMINS [Concomitant]
  36. MORPHIN [Concomitant]
  37. CHLORHEXIDINE GLUCONATE [Concomitant]
  38. CEFEPIME [Concomitant]
  39. CHOLESTYRAMINE [Concomitant]
  40. TMP SULPHA [Concomitant]
  41. METOCLOPRAMIDE [Concomitant]
  42. NALOXONE [Concomitant]
  43. MAGNESIUM OXIDE [Concomitant]
  44. FLUMAZENIL [Concomitant]
  45. CYANOCOBALAMIN [Concomitant]
  46. THIAMIN HCL [Concomitant]
  47. PHYTONADIONE [Concomitant]

REACTIONS (4)
  - CHRONIC HEPATIC FAILURE [None]
  - DIABETES MELLITUS [None]
  - HEPATITIS C [None]
  - SEPSIS [None]
